FAERS Safety Report 4885198-3 (Version None)
Quarter: 2006Q1

REPORT INFORMATION
  Report Type: 
  Country: None (occurrence: None)
  Receive Date: 20060119
  Receipt Date: 20051122
  Transmission Date: 20060701
  Serious: Yes (Other)
  Sender: FDA-Public Use
  Company Number: 2005UW17750

PATIENT
  Age: 62 Year
  Sex: Female
  Weight: 65.8 kg

DRUGS (3)
  1. ARIMIDEX [Suspect]
     Indication: BREAST CANCER
     Route: 048
     Dates: start: 20050801, end: 20051101
  2. FOSAMAX [Suspect]
     Indication: OSTEOPOROSIS
  3. MEDICINALPRODUCT NOT SPECIFIED BY SENDER [Concomitant]

REACTIONS (11)
  - BLINDNESS [None]
  - BLINDNESS UNILATERAL [None]
  - COLOUR VISION TESTS ABNORMAL [None]
  - EYE PAIN [None]
  - EYE PRURITUS [None]
  - IRITIS [None]
  - NECK PAIN [None]
  - PERIPHERAL COLDNESS [None]
  - PHOTOPHOBIA [None]
  - VISION BLURRED [None]
  - VISUAL DISTURBANCE [None]
